FAERS Safety Report 15584551 (Version 1)
Quarter: 2018Q4

REPORT INFORMATION
  Report Type: Spontaneous
  Country: US (occurrence: US)
  Receive Date: 20181101
  Receipt Date: 20181101
  Transmission Date: 20190205
  Serious: Yes (Life-Threatening, Hospitalization)
  Sender: FDA-Public Use
  Company Number: None

PATIENT
  Age: 53 Year
  Sex: Male

DRUGS (1)
  1. STRIBILD [Suspect]
     Active Substance: COBICISTAT\ELVITEGRAVIR\EMTRICITABINE\TENOFOVIR DISOPROXIL FUMARATE
     Route: 048
     Dates: start: 201605, end: 201810

REACTIONS (5)
  - Coronary artery occlusion [None]
  - Pulmonary oedema [None]
  - Ejection fraction decreased [None]
  - Renal disorder [None]
  - Dyspnoea [None]

NARRATIVE: CASE EVENT DATE: 20181030
